FAERS Safety Report 10424161 (Version 1)
Quarter: 2014Q3

REPORT INFORMATION
  Report Type: Spontaneous
  Country: US (occurrence: US)
  Receive Date: 20140902
  Receipt Date: 20140902
  Transmission Date: 20150326
  Serious: No
  Sender: FDA-Public Use
  Company Number: US-PFIZER INC-2014238842

PATIENT
  Age: 65 Year
  Sex: Female

DRUGS (1)
  1. SUTENT [Suspect]
     Active Substance: SUNITINIB MALATE
     Dosage: 50 MG, UNK
     Dates: end: 20140825

REACTIONS (5)
  - Oral pain [Unknown]
  - Fatigue [Unknown]
  - Asthenia [Unknown]
  - Dehydration [Unknown]
  - Jaundice [Unknown]
